FAERS Safety Report 5777946-5 (Version None)
Quarter: 2008Q2

REPORT INFORMATION
  Report Type: 
  Country: None (occurrence: None)
  Receive Date: 20080618
  Receipt Date: 20080618
  Transmission Date: 20081010
  Serious: Yes (Hospitalization)
  Sender: FDA-Public Use
  Company Number: None

PATIENT
  Age: 79 Year
  Sex: Male
  Weight: 86.1834 kg

DRUGS (1)
  1. LISINOPRIL [Suspect]
     Dosage: 20 MG PO DAILY
     Route: 048

REACTIONS (2)
  - DYSPNOEA [None]
  - URTICARIA [None]
